FAERS Safety Report 25054697 (Version 2)
Quarter: 2025Q2

REPORT INFORMATION
  Report Type: Report from Study
  Country: US (occurrence: US)
  Receive Date: 20250308
  Receipt Date: 20250408
  Transmission Date: 20250716
  Serious: Yes (Other)
  Sender: ACADIA PHARMACEUTICALS
  Company Number: US-ACADIA PHARMACEUTICALS INC.-ACA-2025-PIM-002509

PATIENT
  Age: 71 Year
  Sex: Male

DRUGS (12)
  1. NUPLAZID [Suspect]
     Active Substance: PIMAVANSERIN TARTRATE
     Indication: Parkinson^s disease psychosis
     Dosage: 34 MILLIGRAM, QD
     Route: 048
     Dates: start: 20250207, end: 20250227
  2. SYMMETREL [Concomitant]
     Active Substance: AMANTADINE HYDROCHLORIDE
  3. SINEMET [Concomitant]
     Active Substance: CARBIDOPA\LEVODOPA
  4. CHOLECALCIFEROL [Concomitant]
     Active Substance: CHOLECALCIFEROL
  5. KLONOPIN [Concomitant]
     Active Substance: CLONAZEPAM
  6. MELATONIN [MELATONIN;PYRIDOXINE HYDROCHLORIDE] [Concomitant]
  7. MOBIC [Concomitant]
     Active Substance: MELOXICAM
  8. REMERON [Concomitant]
     Active Substance: MIRTAZAPINE
  9. MIRALAX [Concomitant]
     Active Substance: POLYETHYLENE GLYCOL 3350
  10. METAMUCIL [Concomitant]
     Active Substance: PLANTAGO SEED
  11. ZOCOR [Concomitant]
     Active Substance: SIMVASTATIN
  12. DIALYVITE VITAMIN D 5000 [Concomitant]

REACTIONS (7)
  - Hallucination [Unknown]
  - Hallucinations, mixed [Unknown]
  - Restlessness [Unknown]
  - Abnormal behaviour [Unknown]
  - Fall [Unknown]
  - Aggression [Unknown]
  - Confusional state [Unknown]

NARRATIVE: CASE EVENT DATE: 20250221
